FAERS Safety Report 11937109 (Version 1)
Quarter: 2016Q1

REPORT INFORMATION
  Report Type: Spontaneous
  Country: US (occurrence: US)
  Receive Date: 20160121
  Receipt Date: 20160121
  Transmission Date: 20160526
  Serious: No
  Sender: FDA-Public Use
  Company Number: US-BAYER-2016-011811

PATIENT
  Age: 32 Year
  Sex: Male
  Weight: 70.3 kg

DRUGS (1)
  1. CLARITIN [Suspect]
     Active Substance: LORATADINE
     Indication: URTICARIA
     Dosage: 1 DF, QD
     Route: 048
     Dates: start: 201501, end: 20150116

REACTIONS (7)
  - Dysphagia [Recovered/Resolved]
  - Nervousness [Recovered/Resolved]
  - Off label use [None]
  - Neck pain [Recovered/Resolved]
  - Panic attack [Recovered/Resolved]
  - Expired product administered [None]
  - Product use issue [None]

NARRATIVE: CASE EVENT DATE: 201501
